FAERS Safety Report 7805718-6 (Version None)
Quarter: 2011Q4

REPORT INFORMATION
  Report Type: 
  Country: None (occurrence: None)
  Receive Date: 20111011
  Receipt Date: 20111005
  Transmission Date: 20120403
  Serious: No
  Sender: FDA-Public Use
  Company Number: US-BIOGENIDEC-2011BI017901

PATIENT
  Sex: Male

DRUGS (1)
  1. TYSABRI [Suspect]
     Indication: MULTIPLE SCLEROSIS
     Route: 042
     Dates: start: 20060101

REACTIONS (12)
  - HYPOAESTHESIA [None]
  - BURNING SENSATION [None]
  - AMNESIA [None]
  - MENTAL IMPAIRMENT [None]
  - GENERAL SYMPTOM [None]
  - BRAIN INJURY [None]
  - CONFUSIONAL STATE [None]
  - STRESS [None]
  - PAIN [None]
  - PAIN IN EXTREMITY [None]
  - DEPRESSION [None]
  - CENTRAL NERVOUS SYSTEM LESION [None]
